FAERS Safety Report 8722385 (Version 2)
Quarter: 2012Q4

REPORT INFORMATION
  Report Type: 
  Country: US (occurrence: US)
  Receive Date: 20120814
  Receipt Date: 20120912
  Transmission Date: 20130627
  Serious: Yes (Hospitalization)
  Sender: FDA-Public Use
  Company Number: US-B.I. PHARMACEUTICALS,INC./RIDGEFIELD-2012-BP-17782BP

PATIENT
  Age: 77 Year
  Sex: Male
  Weight: 84.82 kg

DRUGS (7)
  1. PRADAXA [Suspect]
     Indication: ATRIAL FIBRILLATION
     Dosage: 300 mg
     Route: 048
     Dates: start: 20110615, end: 20120725
  2. DILTIAZEM CR [Concomitant]
     Indication: ATRIAL FIBRILLATION
     Dosage: 120 mg
     Route: 048
  3. AVODART [Concomitant]
     Indication: PROSTATOMEGALY
     Dosage: 0.5 mg
     Route: 048
  4. LIPITOR [Concomitant]
     Indication: HYPERLIPIDAEMIA
     Route: 048
  5. DIHYZIN [Concomitant]
  6. CRESTOR [Concomitant]
  7. ZETIA [Concomitant]

REACTIONS (1)
  - Gastrointestinal haemorrhage [Recovered/Resolved]
